FAERS Safety Report 4514288-X (Version None)
Quarter: 2004Q4

REPORT INFORMATION
  Report Type: 
  Country: None (occurrence: None)
  Receive Date: 20041124
  Receipt Date: 20041104
  Transmission Date: 20050328
  Serious: Yes (Other)
  Sender: FDA-Public Use
  Company Number: AU_041108170

PATIENT
  Age: 55 Year
  Sex: Male
  Weight: 100 kg

DRUGS (3)
  1. XIGRIS [Suspect]
     Indication: SEPSIS
     Dosage: 24 UG/KG/HR
     Dates: start: 20041001, end: 20041003
  2. NORADRENALINE [Concomitant]
  3. VASOPRESSIN [Concomitant]

REACTIONS (5)
  - ACTIVATED PARTIAL THROMBOPLASTIN TIME PROLONGED [None]
  - DRUG EFFECT DECREASED [None]
  - DUODENAL ULCER [None]
  - INTERNATIONAL NORMALISED RATIO DECREASED [None]
  - MELAENA [None]
